FAERS Safety Report 20091757 (Version 1)
Quarter: 2021Q4

REPORT INFORMATION
  Report Type: Spontaneous
  Country: CZ (occurrence: CZ)
  Receive Date: 20211119
  Receipt Date: 20211119
  Transmission Date: 20220303
  Serious: Yes (Other)
  Sender: FDA-Public Use
  Company Number: CZ-IPSEN Group, Research and Development-2021-19397

PATIENT
  Age: 67 Year
  Sex: Male
  Weight: 82 kg

DRUGS (7)
  1. ABIRATERONE [Suspect]
     Active Substance: ABIRATERONE
     Indication: Metastases to bone
     Dosage: UNK
  2. ABIRATERONE [Suspect]
     Active Substance: ABIRATERONE
     Indication: Prostate cancer
     Dosage: UNK
  3. TRIPTORELIN [Suspect]
     Active Substance: TRIPTORELIN
     Indication: Prostate cancer
     Dosage: UNK
  4. TRIPTORELIN [Suspect]
     Active Substance: TRIPTORELIN
     Indication: Off label use
     Dosage: 11.25 MILLIGRAM, Q3MONTHS (STRENGTH AND DOSE: 11.25 MG)
     Route: 030
     Dates: end: 20200318
  5. TRIPTORELIN [Suspect]
     Active Substance: TRIPTORELIN
     Indication: Metastases to bone
     Dosage: UNK
  6. PREDNISONE [Suspect]
     Active Substance: PREDNISONE
     Indication: Product used for unknown indication
  7. BICALUTAMIDE [Concomitant]
     Active Substance: BICALUTAMIDE
     Indication: Disease progression
     Dosage: 50 MILLIGRAM, QD

REACTIONS (7)
  - Hypertension [Recovered/Resolved]
  - Alanine aminotransferase increased [Recovered/Resolved]
  - Off label use [Unknown]
  - Aspartate aminotransferase increased [Recovered/Resolved]
  - Disease progression [Unknown]
  - Flushing [Recovered/Resolved]
  - Weight increased [Recovered/Resolved]

NARRATIVE: CASE EVENT DATE: 20190101
